FAERS Safety Report 9077086 (Version 1)
Quarter: 2013Q1

REPORT INFORMATION
  Report Type: Spontaneous
  Country: US (occurrence: US)
  Receive Date: 20130130
  Receipt Date: 20130130
  Transmission Date: 20140127
  Serious: Yes (Hospitalization, Other)
  Sender: FDA-Public Use
  Company Number: US-RANBAXY-2013US-64690

PATIENT
  Age: 59 Year
  Sex: Female

DRUGS (2)
  1. METFORMIN [Suspect]
     Indication: DIABETES MELLITUS MANAGEMENT
     Dosage: 500 MG, QD
     Route: 065
  2. METFORMIN [Suspect]
     Indication: DIABETES MELLITUS MANAGEMENT
     Dosage: 1000 MG, BID
     Route: 065

REACTIONS (1)
  - Condition aggravated [Recovered/Resolved]
